FAERS Safety Report 4677455-0 (Version None)
Quarter: 2005Q2

REPORT INFORMATION
  Report Type: 
  Country: None (occurrence: None)
  Receive Date: 20050526
  Receipt Date: 20050526
  Transmission Date: 20051028
  Serious: No
  Sender: FDA-Public Use
  Company Number: None

PATIENT
  Age: 60 Year
  Sex: Male
  Weight: 106.5953 kg

DRUGS (4)
  1. PHENYTOIN SODIUM  ANTICONVULSANTS [Suspect]
     Indication: CONVULSION
     Dosage: 200 MG PO BID
     Route: 048
  2. METOPROLOL [Concomitant]
  3. CLONIDINE [Concomitant]
  4. INSULIN [Concomitant]

REACTIONS (6)
  - DEPRESSED LEVEL OF CONSCIOUSNESS [None]
  - HYPOTENSION [None]
  - MENTAL IMPAIRMENT [None]
  - PYREXIA [None]
  - TACHYCARDIA [None]
  - UROSEPSIS [None]
